FAERS Safety Report 7779717-7 (Version None)
Quarter: 2011Q3

REPORT INFORMATION
  Report Type: 
  Country: None (occurrence: None)
  Receive Date: 20110927
  Receipt Date: 20110921
  Transmission Date: 20111222
  Serious: Yes (Other)
  Sender: FDA-Public Use
  Company Number: FR-PFIZER INC-2011225084

PATIENT
  Sex: Female

DRUGS (1)
  1. ZOLOFT [Suspect]
     Indication: DEPRESSION
     Dosage: UNK
     Dates: end: 20110101

REACTIONS (3)
  - DRUG WITHDRAWAL SYNDROME [None]
  - HALLUCINATION, AUDITORY [None]
  - THYROID DISORDER [None]
